FAERS Safety Report 7860713-6 (Version None)
Quarter: 2011Q4

REPORT INFORMATION
  Report Type: 
  Country: None (occurrence: None)
  Receive Date: 20111025
  Receipt Date: 20111018
  Transmission Date: 20120403
  Serious: Yes (Death, Hospitalization)
  Sender: FDA-Public Use
  Company Number: 2011002073

PATIENT
  Age: 63 Year
  Sex: Female

DRUGS (2)
  1. TARCEVA [Suspect]
  2. TARCEVA [Suspect]
     Indication: PANCREATIC CARCINOMA
     Dosage: 100 MG, UID/QD, ORAL
     Route: 048
     Dates: start: 20110413

REACTIONS (6)
  - PANCREATIC CARCINOMA METASTATIC [None]
  - RASH [None]
  - HAEMOPTYSIS [None]
  - DIARRHOEA [None]
  - METASTASES TO LIVER [None]
  - METASTASES TO LUNG [None]
